FAERS Safety Report 13857656 (Version 7)
Quarter: 2018Q1

REPORT INFORMATION
  Report Type: Spontaneous
  Country: US (occurrence: US)
  Receive Date: 20170811
  Receipt Date: 20180202
  Transmission Date: 20180508
  Serious: Yes (Life-Threatening, Hospitalization, Other)
  Sender: FDA-Public Use
  Company Number: US-NOVOPROD-551325

PATIENT
  Age: 68 Year
  Sex: Male
  Weight: 80 kg

DRUGS (8)
  1. LANTUS [Suspect]
     Active Substance: INSULIN GLARGINE
     Indication: TYPE 2 DIABETES MELLITUS
     Dosage: 160 U, QD
     Route: 058
     Dates: start: 20170322, end: 20170406
  2. NOVOLOG [Suspect]
     Active Substance: INSULIN ASPART
     Dosage: 105 U, QD
     Route: 058
     Dates: start: 20170331
  3. LANTUS [Suspect]
     Active Substance: INSULIN GLARGINE
     Dosage: 150 U, QD
     Route: 058
     Dates: start: 20170406
  4. NOVOLOG [Suspect]
     Active Substance: INSULIN ASPART
     Dosage: DOSE DECREASED
     Route: 065
     Dates: start: 20170528, end: 20170528
  5. NOVOLOG [Suspect]
     Active Substance: INSULIN ASPART
     Indication: TYPE 2 DIABETES MELLITUS
     Dosage: 160 U, QD
     Route: 058
     Dates: start: 20170322, end: 20170330
  6. NOVOLOG [Suspect]
     Active Substance: INSULIN ASPART
     Dosage: 90 U,QD
     Route: 058
     Dates: start: 20170406, end: 20170528
  7. LANTUS [Suspect]
     Active Substance: INSULIN GLARGINE
     Dosage: 60 U, QD
     Route: 058
     Dates: start: 20170510, end: 20170528
  8. LANTUS [Suspect]
     Active Substance: INSULIN GLARGINE
     Dosage: AT DECREASED DOSE
     Route: 058
     Dates: start: 20170528

REACTIONS (9)
  - Acute kidney injury [Unknown]
  - Rhabdomyolysis [Unknown]
  - Fall [Recovered/Resolved]
  - Leukocytosis [Unknown]
  - Hypoglycaemic unconsciousness [Recovered/Resolved]
  - Fall [Recovered/Resolved]
  - Skin abrasion [Recovering/Resolving]
  - Hypoglycaemic unconsciousness [Recovered/Resolved]
  - Blood glucose decreased [Unknown]

NARRATIVE: CASE EVENT DATE: 201705
